FAERS Safety Report 6713267-1 (Version None)
Quarter: 2010Q2

REPORT INFORMATION
  Report Type: 
  Country: None (occurrence: None)
  Receive Date: 20100505
  Receipt Date: 20100505
  Transmission Date: 20101027
  Serious: Yes (Hospitalization)
  Sender: FDA-Public Use
  Company Number: None

PATIENT
  Sex: Female
  Weight: 25.8 kg

DRUGS (8)
  1. MERCAPTOPURINE [Suspect]
     Dosage: 2075 MG
  2. METHOTREXATE [Suspect]
     Dosage: 36 MG
  3. PEG-L-ASPARAGINASE (PEGASPARGASE, ONCOSPAR) [Suspect]
     Dosage: 2375 MG
  4. VINCRISTINE SULFATE [Suspect]
     Dosage: 1.4 MG
  5. ATIVAN [Concomitant]
  6. BACTRIM [Concomitant]
  7. ELAVIL [Concomitant]
  8. ZOFRAN [Concomitant]

REACTIONS (8)
  - ACTIVATED PARTIAL THROMBOPLASTIN TIME ABNORMAL [None]
  - DISSEMINATED INTRAVASCULAR COAGULATION [None]
  - FIBRIN D DIMER INCREASED [None]
  - HAEMATEMESIS [None]
  - HEART RATE INCREASED [None]
  - PANCREATITIS ACUTE [None]
  - PROTHROMBIN TIME ABNORMAL [None]
  - URINE OUTPUT DECREASED [None]
